FAERS Safety Report 23542703 (Version 1)
Quarter: 2024Q1

REPORT INFORMATION
  Report Type: Report from Study
  Country: CA (occurrence: CA)
  Receive Date: 20240220
  Receipt Date: 20240220
  Transmission Date: 20240409
  Serious: Yes (Other)
  Sender: FDA-Public Use
  Company Number: CA-TAKEDA-2024TUS015437

PATIENT
  Sex: Male

DRUGS (3)
  1. VEDOLIZUMAB [Suspect]
     Active Substance: VEDOLIZUMAB
     Indication: Crohn^s disease
     Dosage: 300 MILLIGRAM
     Route: 042
     Dates: start: 20240104
  2. PREDNISONE [Concomitant]
     Active Substance: PREDNISONE
     Dosage: UNK
     Dates: start: 20231124
  3. NYSTATIN [Concomitant]
     Active Substance: NYSTATIN
     Dosage: 4 MILLILITER
     Route: 048
     Dates: start: 20240213

REACTIONS (3)
  - Diabetes mellitus [Recovering/Resolving]
  - Mouth ulceration [Recovering/Resolving]
  - Carpal tunnel syndrome [Recovering/Resolving]
